FAERS Safety Report 7732132-4 (Version None)
Quarter: 2011Q3

REPORT INFORMATION
  Report Type: 
  Country: None (occurrence: None)
  Receive Date: 20110906
  Receipt Date: 20110810
  Transmission Date: 20111222
  Serious: No
  Sender: FDA-Public Use
  Company Number: US-AMGEN-USASP2011041092

PATIENT
  Sex: Female

DRUGS (15)
  1. B6 [Concomitant]
  2. XALATAN [Concomitant]
  3. SYNTHROID [Concomitant]
  4. NORVASC [Concomitant]
  5. ASPIRIN [Concomitant]
  6. CALCIUM CARBONATE [Concomitant]
  7. TIMOLOL MALEATE [Concomitant]
     Indication: GLAUCOMA
  8. MULTIVITAMIN                       /00097801/ [Concomitant]
  9. PROLIA [Suspect]
     Indication: OSTEOPOROSIS POSTMENOPAUSAL
     Dosage: 60 MG, Q6MO
     Dates: start: 20110601
  10. B12                                /00056201/ [Concomitant]
     Dates: end: 20110101
  11. LOVAZA [Concomitant]
  12. ENSURE                             /06184901/ [Concomitant]
  13. FOLIC ACID [Concomitant]
  14. TOPROL-XL [Concomitant]
  15. AMBIEN [Concomitant]

REACTIONS (1)
  - RASH [None]
